FAERS Safety Report 16273485 (Version 1)
Quarter: 2019Q2

REPORT INFORMATION
  Report Type: Spontaneous
  Country: US (occurrence: US)
  Receive Date: 20190503
  Receipt Date: 20190503
  Transmission Date: 20190711
  Serious: No
  Sender: FDA-Public Use
  Company Number: US-RADIUS HEALTH INC.-2019US001102

PATIENT
  Sex: Female
  Weight: 37.19 kg

DRUGS (1)
  1. TYMLOS [Suspect]
     Active Substance: ABALOPARATIDE
     Indication: OSTEOPOROSIS POSTMENOPAUSAL
     Dosage: 80 MCG, UNKNOWN
     Route: 065

REACTIONS (3)
  - Chest discomfort [Unknown]
  - Abdominal pain [Unknown]
  - Headache [Unknown]
